FAERS Safety Report 10897529 (Version 1)
Quarter: 2015Q1

REPORT INFORMATION
  Report Type: Report from Study
  Country: MX (occurrence: MX)
  Receive Date: 20150309
  Receipt Date: 20150309
  Transmission Date: 20150721
  Serious: Yes (Hospitalization)
  Sender: FDA-Public Use
  Company Number: MX-BAYER-2014-127967

PATIENT
  Age: 73 Year
  Sex: Female
  Weight: 51 kg

DRUGS (17)
  1. DEXLANSOPRAZOLE [Concomitant]
     Active Substance: DEXLANSOPRAZOLE
  2. RIOCIGUAT (GUANYLATE CYCLASE STIMULATOR) [Suspect]
     Active Substance: RIOCIGUAT
     Indication: PULMONARY HYPERTENSION
     Dosage: 1.5 MG, TID
     Route: 048
     Dates: start: 20140728, end: 20140903
  3. XARELTO [Concomitant]
     Active Substance: RIVAROXABAN
     Indication: PULMONARY HYPERTENSION
     Dosage: 20 MG, QD
     Route: 048
     Dates: start: 201401, end: 20140904
  4. ADEPSIQUE [Concomitant]
     Indication: INSOMNIA
     Dosage: 2.5 MG, QD
     Route: 048
     Dates: start: 2012
  5. OXYGEN. [Concomitant]
     Active Substance: OXYGEN
     Indication: PULMONARY HYPERTENSION
     Dosage: 3L/MIN
     Route: 055
     Dates: start: 2012, end: 20140911
  6. FUROSEMIDE. [Concomitant]
     Active Substance: FUROSEMIDE
     Indication: PULMONARY HYPERTENSION
     Dosage: 90 MG
     Route: 042
     Dates: start: 20140824, end: 20140911
  7. ADEPSIQUE [Concomitant]
     Indication: INSOMNIA
     Dosage: 10 MG, QD
     Route: 048
     Dates: start: 2012, end: 20140911
  8. BUTILHIOSCINA [Concomitant]
     Indication: HYPERCHLORHYDRIA
     Dosage: 10 MG, QD
     Route: 048
     Dates: start: 20140824, end: 20140911
  9. ONDANSETRON [Concomitant]
     Active Substance: ONDANSETRON
     Indication: HYPERCHLORHYDRIA
     Dosage: 4 MG, QD
     Route: 042
     Dates: start: 20140824, end: 20140903
  10. PANTOPRAZOLE [Concomitant]
     Active Substance: PANTOPRAZOLE SODIUM
     Indication: GASTROOESOPHAGEAL REFLUX DISEASE
     Dosage: 20 MG, QD
     Route: 048
     Dates: start: 201401, end: 20140904
  11. PARACETAMOL [Concomitant]
     Active Substance: ACETAMINOPHEN
     Indication: OSTEOARTHRITIS
     Dosage: 750 MG, QD
     Route: 048
     Dates: start: 2012, end: 20140911
  12. CITRACAL [Concomitant]
     Active Substance: CALCIUM CITRATE
     Indication: OSTEOARTHRITIS
     Dosage: 630 MG, QD
     Route: 048
     Dates: start: 201401, end: 20140911
  13. ENOXAPARIN [Concomitant]
     Active Substance: ENOXAPARIN
     Indication: PULMONARY HYPERTENSION
     Dosage: 60 MG, QD
     Route: 058
     Dates: start: 20140904, end: 20140911
  14. AMLODIPINE [Concomitant]
     Active Substance: AMLODIPINE BESYLATE
     Indication: HYPERTENSION
     Dosage: 5 MG, QD
     Route: 048
     Dates: start: 2010, end: 20140822
  15. LEVOTHYROXINE [Concomitant]
     Active Substance: LEVOTHYROXINE
     Indication: HYPOTHYROIDISM
     Dosage: 25 ?G, QD
     Route: 048
     Dates: start: 20140824, end: 20140911
  16. ALLOPURINOL. [Concomitant]
     Active Substance: ALLOPURINOL
     Indication: OSTEOARTHRITIS
     Dosage: 300 MG, QD
     Route: 048
     Dates: start: 20140903, end: 20140911
  17. OMEPRAZOLE. [Concomitant]
     Active Substance: OMEPRAZOLE
     Indication: HYPERCHLORHYDRIA
     Dosage: 20 MG
     Route: 048
     Dates: start: 20140905, end: 20140911

REACTIONS (2)
  - Pneumonia [Not Recovered/Not Resolved]
  - Cardiac failure chronic [Not Recovered/Not Resolved]

NARRATIVE: CASE EVENT DATE: 20140822
